FAERS Safety Report 9815934 (Version 1)
Quarter: 2014Q1

REPORT INFORMATION
  Report Type: Spontaneous
  Country: US (occurrence: US)
  Receive Date: 20140114
  Receipt Date: 20140114
  Transmission Date: 20141002
  Serious: No
  Sender: FDA-Public Use
  Company Number: US-BAYER-2014-006076

PATIENT
  Age: 77 Year
  Sex: Female
  Weight: 113 kg

DRUGS (1)
  1. ALEVE CAPLET [Suspect]
     Dosage: 1 DF, PRN
     Route: 048

REACTIONS (1)
  - Abdominal discomfort [Recovered/Resolved]
